FAERS Safety Report 17402351 (Version 1)
Quarter: 2020Q1

REPORT INFORMATION
  Report Type: Spontaneous
  Country: US (occurrence: US)
  Receive Date: 20200211
  Receipt Date: 20200211
  Transmission Date: 20200409
  Serious: No
  Sender: FDA-Public Use
  Company Number: US-GLAXOSMITHKLINE-US2020022293

PATIENT
  Age: 37 Year
  Sex: Male

DRUGS (1)
  1. ALLI [Suspect]
     Active Substance: ORLISTAT
     Indication: WEIGHT LOSS DIET
     Dosage: UNK
     Dates: start: 20191212

REACTIONS (5)
  - Adverse drug reaction [Recovering/Resolving]
  - Acne [Recovering/Resolving]
  - Skin discolouration [Recovering/Resolving]
  - Scar [Recovering/Resolving]
  - Rash [Recovering/Resolving]

NARRATIVE: CASE EVENT DATE: 20191214
